FAERS Safety Report 15992934 (Version 1)
Quarter: 2019Q1

REPORT INFORMATION
  Report Type: Spontaneous
  Country: US (occurrence: US)
  Receive Date: 20190222
  Receipt Date: 20190222
  Transmission Date: 20190418
  Serious: No
  Sender: FDA-Public Use
  Company Number: US-TEVA-2019-US-1005911

PATIENT
  Sex: Female

DRUGS (1)
  1. SUCRALFATE. [Suspect]
     Active Substance: SUCRALFATE
     Route: 048

REACTIONS (4)
  - Foreign body in respiratory tract [Unknown]
  - Product quality issue [Unknown]
  - Product use complaint [Unknown]
  - Product physical issue [Unknown]
